FAERS Safety Report 18821448 (Version 1)
Quarter: 2021Q1

REPORT INFORMATION
  Report Type: Spontaneous
  Country: FR (occurrence: FR)
  Receive Date: 20210201
  Receipt Date: 20210201
  Transmission Date: 20210419
  Serious: Yes (Hospitalization)
  Sender: FDA-Public Use
  Company Number: FR-PFIZER INC-2021066033

PATIENT
  Age: 45 Year
  Sex: Male

DRUGS (5)
  1. COCAINE [Concomitant]
     Active Substance: COCAINE
     Dosage: UNK
     Route: 065
  2. SUBUTEX [Concomitant]
     Active Substance: BUPRENORPHINE HYDROCHLORIDE
     Dosage: UNK
  3. ALCOOL [Suspect]
     Active Substance: ALCOHOL
     Dosage: UNK
     Route: 048
  4. ALPRAZOLAM. [Suspect]
     Active Substance: ALPRAZOLAM
     Dosage: UNK
  5. NOCTAMIDE [Suspect]
     Active Substance: LORMETAZEPAM
     Dosage: UNK

REACTIONS (3)
  - Miosis [Recovered/Resolved]
  - Somnolence [Recovered/Resolved]
  - Drug abuse [Unknown]

NARRATIVE: CASE EVENT DATE: 202004
